FAERS Safety Report 11011318 (Version 2)
Quarter: 2015Q2

REPORT INFORMATION
  Report Type: Spontaneous
  Country: BE (occurrence: BE)
  Receive Date: 20150410
  Receipt Date: 20150416
  Transmission Date: 20150821
  Serious: Yes (Hospitalization)
  Sender: FDA-Public Use
  Company Number: PHHY2015BE042427

PATIENT
  Age: 53 Year
  Sex: Male

DRUGS (4)
  1. BACLOFEN. [Concomitant]
     Active Substance: BACLOFEN
     Indication: PRODUCT USED FOR UNKNOWN INDICATION
     Dosage: 10 MG, TID
     Route: 065
     Dates: start: 20150120
  2. BACLOFEN. [Concomitant]
     Active Substance: BACLOFEN
     Dosage: DOSE DECREASED (UNPSCIFIED)
     Route: 065
     Dates: end: 20150405
  3. GILENYA [Suspect]
     Active Substance: FINGOLIMOD HYDROCHLORIDE
     Indication: MULTIPLE SCLEROSIS
     Dosage: 0.5 MG, QD
     Route: 048
     Dates: start: 20140311
  4. BACLOFEN. [Concomitant]
     Active Substance: BACLOFEN
     Dosage: 12.5 MG, TID
     Route: 065
     Dates: start: 20150317

REACTIONS (8)
  - Acute psychosis [Not Recovered/Not Resolved]
  - Insomnia [Recovering/Resolving]
  - Abnormal behaviour [Unknown]
  - Agitation [Recovering/Resolving]
  - Paranoia [Not Recovered/Not Resolved]
  - Delusion [Not Recovered/Not Resolved]
  - Hallucination [Unknown]
  - Somnolence [Unknown]

NARRATIVE: CASE EVENT DATE: 201503
